FAERS Safety Report 6843368-9 (Version None)
Quarter: 2010Q3

REPORT INFORMATION
  Report Type: 
  Country: None (occurrence: None)
  Receive Date: 20100712
  Receipt Date: 20100625
  Transmission Date: 20110219
  Serious: Yes (Life-Threatening)
  Sender: FDA-Public Use
  Company Number: OMPQ-PR-1006S-0409

PATIENT
  Age: 43 Year
  Sex: Female

DRUGS (1)
  1. OMNIPAQUE 140 [Suspect]
     Indication: LEUKOPENIA
     Dosage: 12 ML, SINGLE DOSE, P.O.
     Route: 048
     Dates: start: 20100625, end: 20100625

REACTIONS (1)
  - RESPIRATORY ARREST [None]
